FAERS Safety Report 9012070 (Version 2)
Quarter: 2013Q2

REPORT INFORMATION
  Report Type: Spontaneous
  Country: US (occurrence: None)
  Receive Date: 20120518
  Receipt Date: 20120820
  Transmission Date: 20140414
  Serious: No
  Sender: FDA-Public Use
  Company Number: 1000029012

PATIENT
  Age: 65 Year
  Sex: Male

DRUGS (8)
  1. VIIBRYD [Suspect]
     Indication: DEPRESSION
     Dosage: 10 MG (10 MG, 1 IN 1 D), ORAL
     Route: 048
     Dates: start: 20120227, end: 20120307
  2. PROZAC [Suspect]
     Indication: DEPRESSION
     Dosage: 10 MG (10 MG, 1 IN 1 D) IN 2012
  3. WELLBUTRIN HYDROCHLORIDE [Concomitant]
  4. PRAVASTATIN [Concomitant]
  5. WELCHOL [Concomitant]
  6. XANAX [Concomitant]
  7. LOSARTAN [Concomitant]
  8. AMLODIPINE [Concomitant]

REACTIONS (5)
  - Diarrhoea [None]
  - Abdominal distension [None]
  - Flatulence [None]
  - Libido decreased [None]
  - Constipation [None]
